FAERS Safety Report 16388953 (Version 1)
Quarter: 2019Q2

REPORT INFORMATION
  Report Type: Spontaneous
  Country: US (occurrence: US)
  Receive Date: 20190604
  Receipt Date: 20190604
  Transmission Date: 20190711
  Serious: Yes (Other)
  Sender: FDA-Public Use
  Company Number: US-ROCHE-2327491

PATIENT
  Age: 2 Day
  Sex: Male

DRUGS (2)
  1. ACTILYSE [Suspect]
     Active Substance: ALTEPLASE
     Dosage: 0.1 MG/KG/HR AND CONTINUED FOR ABOUT 9 HR
     Route: 041
  2. ACTILYSE [Suspect]
     Active Substance: ALTEPLASE
     Indication: AORTIC THROMBOSIS
     Dosage: 0.1 MG/KG/HR AND CONTINUED FOR ABOUT 14 HR
     Route: 041

REACTIONS (7)
  - Chromaturia [Unknown]
  - Catheter site bruise [Unknown]
  - Catheter site erosion [Unknown]
  - Catheter site ulcer [Unknown]
  - Vascular access site haemorrhage [Unknown]
  - Catheter site haematoma [Unknown]
  - Catheter site haemorrhage [Unknown]
